FAERS Safety Report 8395463-3 (Version None)
Quarter: 2012Q2

REPORT INFORMATION
  Report Type: 
  Country: None (occurrence: None)
  Receive Date: 20120525
  Receipt Date: 20120525
  Transmission Date: 20120825
  Serious: No
  Sender: FDA-Public Use
  Company Number: None

PATIENT
  Age: 91 Year
  Sex: Female

DRUGS (2)
  1. ASMANEX TWISTHALER [Suspect]
     Indication: ASTHMA
     Dosage: 220 MCG BID INHALE
     Route: 055
  2. ASMANEX TWISTHALER [Suspect]
     Indication: BRONCHITIS
     Dosage: 220 MCG BID INHALE
     Route: 055

REACTIONS (1)
  - DRUG INEFFECTIVE [None]
